FAERS Safety Report 12775217 (Version 1)
Quarter: 2016Q3

REPORT INFORMATION
  Report Type: Spontaneous
  Country: US (occurrence: US)
  Receive Date: 20160922
  Receipt Date: 20160922
  Transmission Date: 20161109
  Serious: No
  Sender: FDA-Public Use
  Company Number: None

PATIENT
  Age: 42 Year
  Sex: Female
  Weight: 90 kg

DRUGS (1)
  1. SERTRALINE [Suspect]
     Active Substance: SERTRALINE HYDROCHLORIDE
     Indication: PREMENSTRUAL DYSPHORIC DISORDER
     Dosage: 90 TAB DAILY ORAL
     Route: 048
     Dates: start: 20160901, end: 20160921

REACTIONS (6)
  - Headache [None]
  - Crying [None]
  - Depression [None]
  - Anxiety [None]
  - Feeling of despair [None]
  - Anger [None]

NARRATIVE: CASE EVENT DATE: 20160901
